FAERS Safety Report 8255435-6 (Version None)
Quarter: 2012Q1

REPORT INFORMATION
  Report Type: 
  Country: None (occurrence: None)
  Receive Date: 20120322
  Receipt Date: 20111122
  Transmission Date: 20120608
  Serious: Yes (Death, Hospitalization)
  Sender: FDA-Public Use
  Company Number: UTC-012746

PATIENT
  Age: 61 Year
  Sex: Female
  Weight: 87.3 kg

DRUGS (2)
  1. TYVASO [Suspect]
     Indication: PULMONARY HYPERTENSION
     Dosage: 216 MCG (54 MCG, 4 IN 1 D), INHALATION
     Route: 055
     Dates: start: 20110609
  2. REVATIO [Concomitant]

REACTIONS (2)
  - DEATH [None]
  - PNEUMONIA [None]
